FAERS Safety Report 7078445-3 (Version None)
Quarter: 2010Q4

REPORT INFORMATION
  Report Type: 
  Country: None (occurrence: None)
  Receive Date: 20101102
  Receipt Date: 20101018
  Transmission Date: 20110411
  Serious: Yes (Other)
  Sender: FDA-Public Use
  Company Number: PHHY2010US70190

PATIENT
  Sex: Female

DRUGS (14)
  1. TEKTURNA [Suspect]
     Indication: HYPERTENSION
     Dosage: 150 MG
     Route: 048
  2. TEKTURNA [Suspect]
     Indication: DIABETES MELLITUS
     Dosage: 300 MG, QD
     Route: 048
     Dates: start: 20100927, end: 20101014
  3. TEKTURNA [Suspect]
     Indication: PROTEIN TOTAL
  4. COREG [Concomitant]
     Dosage: 25 MG, BID
     Route: 048
  5. LEVOTHYROXINE [Concomitant]
     Dosage: 88 MCG
  6. DIOVAN [Concomitant]
     Dosage: UNK
  7. HUMALOG [Concomitant]
  8. PLAVIX [Concomitant]
     Dosage: 75 MG, QD
  9. ASPIRIN [Concomitant]
     Dosage: 81 MG, QD
  10. CRESTOR [Concomitant]
     Dosage: 10 MG, QD
  11. NEURONTIN [Concomitant]
     Dosage: 300 MG, BID
  12. LANTUS [Concomitant]
     Dosage: 20 UNITES
  13. RANEXA [Concomitant]
     Dosage: 500 MG, BID
  14. PROCARDIA [Concomitant]
     Dosage: 60 UNK, QD

REACTIONS (6)
  - BLOOD GLUCOSE INCREASED [None]
  - DIZZINESS [None]
  - HYPERHIDROSIS [None]
  - HYPERTENSION [None]
  - OEDEMA PERIPHERAL [None]
  - PROTEINURIA [None]
